FAERS Safety Report 23370698 (Version 3)
Quarter: 2025Q3

REPORT INFORMATION
  Report Type: Spontaneous
  Country: US (occurrence: US)
  Receive Date: 20240105
  Receipt Date: 20250728
  Transmission Date: 20251020
  Serious: No
  Sender: SANOFI AVENTIS
  Company Number: US-SA-SAC20240101001084

PATIENT
  Age: 41 Year
  Sex: Male
  Weight: 62.1 kg

DRUGS (1)
  1. DUPIXENT [Suspect]
     Active Substance: DUPILUMAB
     Indication: Dermatitis atopic
     Dosage: 300 MG, QOW
     Route: 058

REACTIONS (4)
  - Pharyngitis streptococcal [Unknown]
  - Insomnia [Unknown]
  - Injection site pain [Unknown]
  - Device defective [Unknown]

NARRATIVE: CASE EVENT DATE: 20230101
